FAERS Safety Report 26059199 (Version 1)
Quarter: 2025Q4

REPORT INFORMATION
  Report Type: Spontaneous
  Country: US (occurrence: US)
  Receive Date: 20251118
  Receipt Date: 20251118
  Transmission Date: 20260118
  Serious: No
  Sender: QUAGEN PHARMACEUTICALS
  Company Number: US-QUAGEN-2025QUASPO00752

PATIENT

DRUGS (4)
  1. CYPROHEPTADINE HYDROCHLORIDE [Suspect]
     Active Substance: CYPROHEPTADINE HYDROCHLORIDE
     Indication: Nightmare
     Route: 065
  2. CYPROHEPTADINE HYDROCHLORIDE [Suspect]
     Active Substance: CYPROHEPTADINE HYDROCHLORIDE
     Route: 065
  3. CYPROHEPTADINE HYDROCHLORIDE [Suspect]
     Active Substance: CYPROHEPTADINE HYDROCHLORIDE
     Dosage: 1/2 DOSE
     Route: 065
  4. CYPROHEPTADINE HYDROCHLORIDE [Suspect]
     Active Substance: CYPROHEPTADINE HYDROCHLORIDE
     Route: 065

REACTIONS (12)
  - Feeling abnormal [Unknown]
  - Paranoia [Unknown]
  - Dissociation [Unknown]
  - Sluggishness [Unknown]
  - Memory impairment [Unknown]
  - Disturbance in attention [Unknown]
  - Confusional state [Unknown]
  - Dizziness [Unknown]
  - Somnolence [Unknown]
  - Drug intolerance [Unknown]
  - Treatment noncompliance [Unknown]
  - Drug ineffective for unapproved indication [Unknown]
